FAERS Safety Report 7439098-5 (Version None)
Quarter: 2011Q2

REPORT INFORMATION
  Report Type: 
  Country: None (occurrence: None)
  Receive Date: 20110427
  Receipt Date: 20110412
  Transmission Date: 20111010
  Serious: Yes (Hospitalization, Other)
  Sender: FDA-Public Use
  Company Number: JP-CELGENEUS-087-21880-10102934

PATIENT
  Sex: Female

DRUGS (14)
  1. DECADRON [Concomitant]
     Dosage: 20 MILLIGRAM
     Route: 048
     Dates: start: 20101006, end: 20101009
  2. UBRETID [Concomitant]
     Dosage: 5 MILLIGRAM
     Route: 048
     Dates: end: 20101018
  3. REVLIMID [Suspect]
     Indication: MULTIPLE MYELOMA
     Dosage: 10 MILLIGRAM
     Route: 048
     Dates: start: 20100922, end: 20101002
  4. DECADRON [Concomitant]
     Indication: MULTIPLE MYELOMA
     Dosage: 20 MILLIGRAM
     Route: 048
     Dates: start: 20100922, end: 20100925
  5. CORTRIL [Concomitant]
     Dosage: 30 MILLIGRAM
     Route: 048
     Dates: end: 20101018
  6. FLUCONARL [Concomitant]
     Indication: PROPHYLAXIS
     Dosage: 200 MILLIGRAM
     Route: 048
     Dates: end: 20101018
  7. BAKTAR [Concomitant]
     Indication: PROPHYLAXIS
     Dosage: 200 MILLIGRAM
     Route: 048
     Dates: end: 20101018
  8. GOSHAJINKIGAN [Concomitant]
     Dosage: 7.5 MILLIGRAM
     Route: 048
     Dates: end: 20101018
  9. GABAPEN [Concomitant]
     Dosage: 1200 MILLIGRAM
     Route: 048
     Dates: end: 20101018
  10. REVLIMID [Suspect]
     Dosage: 5 MILLIGRAM
     Route: 048
     Dates: start: 20101008, end: 20101009
  11. EBRANTIL [Concomitant]
     Dosage: 30 MILLIGRAM
     Route: 048
     Dates: end: 20101018
  12. TRYPTANOL [Concomitant]
     Dosage: 25 MILLIGRAM
     Route: 048
     Dates: end: 20101018
  13. ASPIRIN [Concomitant]
     Indication: PROPHYLAXIS
     Dosage: 100 MILLIGRAM
     Route: 048
     Dates: start: 20100922, end: 20101018
  14. ZOMETA [Concomitant]
     Indication: MULTIPLE MYELOMA
     Dosage: 4 MILLIGRAM
     Route: 051
     Dates: start: 20100921, end: 20100921

REACTIONS (2)
  - NEUROPATHY PERIPHERAL [None]
  - RASH [None]
